FAERS Safety Report 24057846 (Version 2)
Quarter: 2024Q3

REPORT INFORMATION
  Report Type: Spontaneous
  Country: US (occurrence: None)
  Receive Date: 20240707
  Receipt Date: 20240816
  Transmission Date: 20241017
  Serious: No
  Sender: ASTRAZENECA
  Company Number: 2024A153786

PATIENT
  Age: 75 Year
  Sex: Female
  Weight: 64.3 kg

DRUGS (1)
  1. FULVESTRANT [Suspect]
     Active Substance: FULVESTRANT
     Indication: Breast cancer
     Dosage: 500.0MG UNKNOWN
     Route: 030
     Dates: start: 20240618, end: 20240702

REACTIONS (11)
  - Neuralgia [Unknown]
  - Gait disturbance [Unknown]
  - Muscular weakness [Unknown]
  - Pain in extremity [Unknown]
  - Myalgia [Unknown]
  - Hypoaesthesia [Unknown]
  - Limb discomfort [Unknown]
  - Arthropathy [Unknown]
  - Burning sensation [Unknown]
  - Pain assessment [Unknown]
  - Paraesthesia [Unknown]
